FAERS Safety Report 16044616 (Version 1)
Quarter: 2019Q1

REPORT INFORMATION
  Report Type: Spontaneous
  Country: CA (occurrence: CA)
  Receive Date: 20190306
  Receipt Date: 20190306
  Transmission Date: 20190418
  Serious: Yes (Other)
  Sender: FDA-Public Use
  Company Number: CA-AUROBINDO-AUR-APL-2019-010453

PATIENT

DRUGS (1)
  1. CYCLOBENZAPRINE TABLETS [Suspect]
     Active Substance: CYCLOBENZAPRINE
     Indication: NECK PAIN
     Dosage: 5 MILLIGRAM, ONCE A DAY
     Route: 048

REACTIONS (2)
  - Migraine [Recovered/Resolved]
  - Oedema [Recovered/Resolved]
